FAERS Safety Report 7908193-6 (Version None)
Quarter: 2011Q4

REPORT INFORMATION
  Report Type: 
  Country: None (occurrence: None)
  Receive Date: 20111111
  Receipt Date: 20111102
  Transmission Date: 20120403
  Serious: No
  Sender: FDA-Public Use
  Company Number: US-BIOGENIDEC-2011BI042179

PATIENT
  Age: 50 Year
  Sex: Male

DRUGS (3)
  1. TYSABRI [Suspect]
     Route: 042
     Dates: start: 20100325, end: 20101202
  2. TYSABRI [Suspect]
     Route: 042
     Dates: start: 20070830, end: 20091203
  3. TYSABRI [Suspect]
     Indication: MULTIPLE SCLEROSIS
     Route: 042
     Dates: start: 20110623

REACTIONS (5)
  - JOINT STIFFNESS [None]
  - ARTHROPATHY [None]
  - FEELING ABNORMAL [None]
  - ASTHENIA [None]
  - JOINT CREPITATION [None]
